FAERS Safety Report 9865849 (Version 1)
Quarter: 2014Q1

REPORT INFORMATION
  Report Type: Spontaneous
  Country: US (occurrence: US)
  Receive Date: 20140203
  Receipt Date: 20140203
  Transmission Date: 20141002
  Serious: No
  Sender: FDA-Public Use
  Company Number: US-ALLERGAN-1312493US

PATIENT
  Age: 78 Year
  Sex: Female

DRUGS (6)
  1. RESTASIS [Suspect]
     Indication: DRY EYE
     Dosage: 2 GTT, BID
     Route: 047
     Dates: end: 20130814
  2. COUMADIN                           /00014802/ [Concomitant]
     Indication: THROMBOSIS
     Dosage: UNK
  3. BETAPACE [Concomitant]
     Indication: ATRIAL FIBRILLATION
     Dosage: UNK
  4. GENTEAL                            /00445101/ [Concomitant]
     Indication: EYE LUBRICATION THERAPY
     Route: 047
  5. SYSTANE ULTRA [Concomitant]
     Indication: EYE LUBRICATION THERAPY
     Dosage: UNK UNK, Q1HR
     Route: 047
  6. ACETYLCYSTEINE 10% [Concomitant]
     Indication: PRODUCT USED FOR UNKNOWN INDICATION
     Dosage: UNK, QID
     Route: 047

REACTIONS (16)
  - Adverse event [Unknown]
  - Eyelid irritation [Unknown]
  - Eyelid irritation [Unknown]
  - Pruritus [Unknown]
  - Pruritus [Unknown]
  - Eye irritation [Unknown]
  - Eye pain [Unknown]
  - Lacrimation increased [Unknown]
  - Eyelid oedema [Unknown]
  - Erythema of eyelid [Unknown]
  - Foreign body sensation in eyes [Unknown]
  - Eye discharge [Unknown]
  - Eye discharge [Unknown]
  - Eye discharge [Unknown]
  - Vision blurred [Unknown]
  - Headache [Unknown]
